FAERS Safety Report 9506554 (Version 1)
Quarter: 2013Q3

REPORT INFORMATION
  Report Type: Spontaneous
  Country: US (occurrence: None)
  Receive Date: 20130905
  Receipt Date: 20130905
  Transmission Date: 20140515
  Serious: No
  Sender: FDA-Public Use
  Company Number: None

PATIENT
  Age: 49 Year
  Sex: Female

DRUGS (1)
  1. TOPAMAX [Suspect]
     Indication: EPILEPSY
     Dosage: ^FOR YEARS^ ACTUAL DATES UNKNOWN

REACTIONS (2)
  - Logorrhoea [None]
  - Thinking abnormal [None]
